FAERS Safety Report 5944319-1 (Version None)
Quarter: 2008Q4

REPORT INFORMATION
  Report Type: 
  Country: None (occurrence: None)
  Receive Date: 20081105
  Receipt Date: 20081021
  Transmission Date: 20090506
  Serious: Yes (Other)
  Sender: FDA-Public Use
  Company Number: 230908K08USA

PATIENT
  Age: 54 Year
  Sex: Female
  Weight: 95 kg

DRUGS (8)
  1. REBIF [Suspect]
     Indication: MULTIPLE SCLEROSIS
     Dosage: 44 MCG, 3 IN 1 WEEKS, SUBCUTANEOUS
     Route: 058
     Dates: start: 20080418, end: 20080718
  2. DILACOR XR [Concomitant]
  3. ATACAND [Concomitant]
  4. PROVIGIL [Concomitant]
  5. UNSPECIFIED MEDICATION (ALL OTHER THERAPEUTIC PRODUCTS) [Concomitant]
  6. ASPIRIN [Concomitant]
  7. LEXAPRO [Concomitant]
  8. NEURONTIN [Concomitant]

REACTIONS (4)
  - BONE MARROW DISORDER [None]
  - FATIGUE [None]
  - FIBROSIS [None]
  - THROMBOSIS [None]
